FAERS Safety Report 5283459-X (Version None)
Quarter: 2007Q2

REPORT INFORMATION
  Report Type: 
  Country: None (occurrence: None)
  Receive Date: 20070402
  Receipt Date: 20070327
  Transmission Date: 20071010
  Serious: Yes (Hospitalization)
  Sender: FDA-Public Use
  Company Number: NL-MERCK-0703NLD00024

PATIENT
  Age: 58 Year
  Sex: Male

DRUGS (3)
  1. ZETIA [Suspect]
     Indication: HYPERCHOLESTEROLAEMIA
     Route: 048
     Dates: start: 20051212, end: 20070303
  2. FUROSEMIDE [Concomitant]
     Route: 048
     Dates: start: 20041001
  3. VALSARTAN AND HYDROCHLOROTHIAZIDE [Concomitant]
     Route: 048
     Dates: start: 20050901

REACTIONS (2)
  - MUSCULAR WEAKNESS [None]
  - TENDON RUPTURE [None]
